FAERS Safety Report 13473045 (Version 2)
Quarter: 2017Q2

REPORT INFORMATION
  Report Type: Spontaneous
  Country: US (occurrence: US)
  Receive Date: 20170424
  Receipt Date: 20170428
  Transmission Date: 20170830
  Serious: Yes (Life-Threatening, Hospitalization, Other)
  Sender: FDA-Public Use
  Company Number: US-GALDERMA-US17002843

PATIENT
  Age: 7 Decade
  Sex: Male

DRUGS (3)
  1. LIDOCAINE. [Concomitant]
     Active Substance: LIDOCAINE
     Indication: PRODUCT USED FOR UNKNOWN INDICATION
     Dosage: 1%
  2. BRIMONIDINE TARTRATE. [Suspect]
     Active Substance: BRIMONIDINE TARTRATE
     Indication: HAEMOSTASIS
     Dosage: 0.33%
     Route: 061
  3. EPINEPHRINE. [Concomitant]
     Active Substance: EPINEPHRINE
     Indication: PRODUCT USED FOR UNKNOWN INDICATION
     Dosage: 1:100000

REACTIONS (9)
  - Mood altered [Recovered/Resolved]
  - Respiratory depression [Recovering/Resolving]
  - Depressed level of consciousness [Recovered/Resolved]
  - Off label use [Recovered/Resolved]
  - Anxiety [Recovered/Resolved]
  - Intentional overdose [Recovered/Resolved]
  - Intentional product use issue [Recovered/Resolved]
  - Mental disorder [Recovered/Resolved]
  - Somnolence [Recovering/Resolving]
